FAERS Safety Report 5633884-X (Version None)
Quarter: 2008Q1

REPORT INFORMATION
  Report Type: 
  Country: None (occurrence: None)
  Receive Date: 20080221
  Receipt Date: 20080124
  Transmission Date: 20080703
  Serious: No
  Sender: FDA-Public Use
  Company Number: US-BOEHRINGER INGELHEIM GMBH, GERMANY-2008-BP-01237BP

PATIENT
  Age: 67 Year
  Sex: Male

DRUGS (1)
  1. MIRAPEX [Suspect]

REACTIONS (2)
  - DRY EYE [None]
  - DRY MOUTH [None]
